FAERS Safety Report 9249843 (Version 1)
Quarter: 2013Q2

REPORT INFORMATION
  Report Type: Spontaneous
  Country: CN (occurrence: CN)
  Receive Date: 20130423
  Receipt Date: 20130423
  Transmission Date: 20140414
  Serious: Yes (Other)
  Sender: FDA-Public Use
  Company Number: CN-B.I. PHARMACEUTICALS,INC./RIDGEFIELD-2013-BI-10809YA

PATIENT
  Sex: Female
  Weight: 60 kg

DRUGS (1)
  1. TAMSULOSINA [Suspect]
     Indication: URINARY RETENTION
     Route: 048
     Dates: start: 20120820, end: 20120828

REACTIONS (3)
  - Depressed level of consciousness [Not Recovered/Not Resolved]
  - Dysphonia [Not Recovered/Not Resolved]
  - Dizziness [Not Recovered/Not Resolved]
